FAERS Safety Report 8556479-7 (Version None)
Quarter: 2012Q3

REPORT INFORMATION
  Report Type: 
  Country: None (occurrence: None)
  Receive Date: 20120801
  Receipt Date: 20120730
  Transmission Date: 20120928
  Serious: Yes (Hospitalization)
  Sender: FDA-Public Use
  Company Number: PHHY2012AR065756

PATIENT
  Sex: Male

DRUGS (1)
  1. EXFORGE [Suspect]
     Indication: BLOOD PRESSURE
     Dosage: 1 DF (160MG VALS/ 5MG AMLO), DAILY

REACTIONS (3)
  - THROMBOPHLEBITIS [None]
  - PAIN [None]
  - INJURY [None]
